FAERS Safety Report 5698353-X (Version None)
Quarter: 2008Q2

REPORT INFORMATION
  Report Type: 
  Country: None (occurrence: None)
  Receive Date: 20080408
  Receipt Date: 20080402
  Transmission Date: 20081010
  Serious: Yes (Other)
  Sender: FDA-Public Use
  Company Number: US-PFIZER INC-2008029216

PATIENT
  Sex: Female

DRUGS (2)
  1. CELEBREX [Suspect]
     Route: 048
  2. BEXTRA [Suspect]
     Route: 048
     Dates: start: 20000901

REACTIONS (1)
  - CEREBROVASCULAR ACCIDENT [None]
